FAERS Safety Report 8340330-4 (Version None)
Quarter: 2012Q2

REPORT INFORMATION
  Report Type: 
  Country: None (occurrence: None)
  Receive Date: 20120507
  Receipt Date: 20120507
  Transmission Date: 20120825
  Serious: Yes (Other)
  Sender: FDA-Public Use
  Company Number: None

PATIENT
  Age: 64 Year
  Sex: Female
  Weight: 77.11 kg

DRUGS (1)
  1. RITUXAN [Suspect]
     Indication: RHEUMATOID ARTHRITIS
     Dosage: |DOSAGETEXT: DON'T KNOW||STRENGTH: DON'T KNOW||FREQ: 2 TIMES, 2 WEEKS A||ROUTE: INTRAVENOUS DRIP|
     Route: 041
     Dates: start: 20111001, end: 20111130

REACTIONS (8)
  - BLOOD PRESSURE INCREASED [None]
  - ARTHRITIS [None]
  - CHEST DISCOMFORT [None]
  - HEART RATE INCREASED [None]
  - NO THERAPEUTIC RESPONSE [None]
  - JOINT SWELLING [None]
  - ARTHRALGIA [None]
  - CONDITION AGGRAVATED [None]
